FAERS Safety Report 17865938 (Version 1)
Quarter: 2020Q2

REPORT INFORMATION
  Report Type: Spontaneous
  Country: US (occurrence: US)
  Receive Date: 20200605
  Receipt Date: 20200605
  Transmission Date: 20200714
  Serious: No
  Sender: FDA-Public Use
  Company Number: US-PFIZER INC-2020220346

PATIENT
  Age: 70 Year
  Sex: Female

DRUGS (2)
  1. XGEVA [Suspect]
     Active Substance: DENOSUMAB
  2. IBRANCE [Suspect]
     Active Substance: PALBOCICLIB
     Dosage: 125 MG, UNK
     Dates: start: 20200401

REACTIONS (5)
  - Diarrhoea [Unknown]
  - Vision blurred [Unknown]
  - White blood cell count decreased [Unknown]
  - Dry mouth [Unknown]
  - Burning sensation [Unknown]

NARRATIVE: CASE EVENT DATE: 2020
